FAERS Safety Report 9522550 (Version 2)
Quarter: 2013Q4

REPORT INFORMATION
  Report Type: Spontaneous
  Country: GB (occurrence: None)
  Receive Date: 20130830
  Receipt Date: 20131009
  Transmission Date: 20140711
  Serious: Yes (Hospitalization)
  Sender: FDA-Public Use
  Company Number: 2013037667

PATIENT
  Age: 61 Year
  Sex: Female

DRUGS (13)
  1. BERINERT [Suspect]
     Indication: HEREDITARY ANGIOEDEMA
     Dates: start: 201204
  2. BERINERT [Suspect]
     Indication: PROPHYLAXIS
     Dates: start: 201204
  3. PREGABALIN (PREGABALIN) [Concomitant]
  4. COLESTYRAMINE (COLESTYRAMINE) [Concomitant]
  5. HUMULIN (INSULIN HUMAN) [Concomitant]
  6. DOMPERIDONE (DOMPERIDONE) [Concomitant]
  7. GALENIC / CALCIUM/ VITAMIN D/ (VITACAL) [Concomitant]
  8. MULTIVITAMIN [Concomitant]
  9. NALCROM (CROMOGLICATE SODIUM) [Concomitant]
  10. ZOPICLONE (ZOPICLONE) [Concomitant]
  11. SYMBICORT (BUDESONIDE W/ FORMOTEROL FUMARATE) [Concomitant]
  12. ALVERINE (ALVERINE) [Concomitant]
  13. CYCLIZINE (CYCLIZINE) [Concomitant]

REACTIONS (5)
  - Pulmonary embolism [None]
  - Malaise [None]
  - Fibrin D dimer increased [None]
  - Coagulation factor VIII level increased [None]
  - Coagulation factor IX level increased [None]
